FAERS Safety Report 14448194 (Version 20)
Quarter: 2020Q3

REPORT INFORMATION
  Report Type: Spontaneous
  Country: CA (occurrence: CA)
  Receive Date: 20180126
  Receipt Date: 20200728
  Transmission Date: 20201102
  Serious: Yes (Other)
  Sender: FDA-Public Use
  Company Number: CA-PFIZER INC-2018017746

PATIENT
  Age: 66 Year
  Sex: Male

DRUGS (28)
  1. METHOTREXATE SODIUM. [Suspect]
     Active Substance: METHOTREXATE SODIUM
     Dosage: 2.5 MG, 1X/DAY
     Route: 048
  2. CELEBREX [Suspect]
     Active Substance: CELECOXIB
     Dosage: UNK
  3. LEUCOVORIN. [Suspect]
     Active Substance: LEUCOVORIN
     Dosage: 5 MG, 1X/DAY
     Route: 048
  4. TWYNSTA [Suspect]
     Active Substance: AMLODIPINE BESYLATE\TELMISARTAN
     Indication: HYPERTENSION
     Dosage: 80 MG
  5. NAPROXEN SODIUM. [Suspect]
     Active Substance: NAPROXEN SODIUM
     Dosage: UNK
  6. FOLINIC ACID [Suspect]
     Active Substance: LEUCOVORIN
     Dosage: 5 MG, 1X/DAY (QD)
     Route: 048
  7. INFLIXIMAB [Concomitant]
     Active Substance: INFLIXIMAB
     Dosage: UNK
     Route: 065
  8. ENBREL [Suspect]
     Active Substance: ETANERCEPT
     Indication: PSORIATIC ARTHROPATHY
     Dosage: UNK
  9. CELECOXIB. [Suspect]
     Active Substance: CELECOXIB
     Dosage: UNK
  10. CALCIUM FOLINATE [Suspect]
     Active Substance: LEUCOVORIN CALCIUM
     Dosage: 5 MG, UNK
     Route: 048
  11. CYCLOBENZAPRINE. [Suspect]
     Active Substance: CYCLOBENZAPRINE
     Dosage: 10 MG, 1X/DAY
     Route: 065
  12. AMLODIPINE BESILATE W/TELMISARTAN [Suspect]
     Active Substance: AMLODIPINE BESYLATE\TELMISARTAN
     Indication: HYPERTENSION
     Dosage: 80 MG, 1X/DAY
  13. INFLIXIMAB [Concomitant]
     Active Substance: INFLIXIMAB
     Dosage: 320 MG
     Route: 042
  14. METHOTREXATE SODIUM. [Suspect]
     Active Substance: METHOTREXATE SODIUM
     Dosage: 2.5 MG, 1X/DAY (QD)
  15. NAPROXEN. [Suspect]
     Active Substance: NAPROXEN
     Dosage: UNK
  16. TWYNSTA [Suspect]
     Active Substance: AMLODIPINE BESYLATE\TELMISARTAN
     Dosage: 80 MG
  17. PANTOPRAZOLE [Suspect]
     Active Substance: PANTOPRAZOLE
     Dosage: 40 MG, 1X/DAY
  18. METHOTREXATE SODIUM. [Suspect]
     Active Substance: METHOTREXATE SODIUM
     Dosage: UNK
     Route: 048
  19. ATORVASTATIN CALCIUM. [Suspect]
     Active Substance: ATORVASTATIN CALCIUM
     Dosage: 10 MG
  20. JANUMET [Suspect]
     Active Substance: METFORMIN HYDROCHLORIDE\SITAGLIPTIN PHOSPHATE
     Dosage: UNK
  21. TWYNSTA [Suspect]
     Active Substance: AMLODIPINE BESYLATE\TELMISARTAN
     Dosage: 80 MG, 1X/DAY
     Route: 065
  22. INFLIXIMAB [Concomitant]
     Active Substance: INFLIXIMAB
     Indication: PSORIATIC ARTHROPATHY
     Dosage: 320 MG, 1X/DAY (QD)
     Route: 042
     Dates: start: 20180111
  23. ATORVASTATIN CALCIUM. [Suspect]
     Active Substance: ATORVASTATIN CALCIUM
     Dosage: 10 MG, 1X/DAY (QD)
  24. CYCLOBENZAPRINE. [Suspect]
     Active Substance: CYCLOBENZAPRINE
     Dosage: 10 MG
  25. METFORMIN HYDROCHLORIDE/SITAGLIPTIN PHOSPHATE MONOHYDRATE [Suspect]
     Active Substance: METFORMIN HYDROCHLORIDE\SITAGLIPTIN PHOSPHATE
     Dosage: UNK
  26. HUMIRA [Concomitant]
     Active Substance: ADALIMUMAB
     Dosage: UNK
     Route: 065
  27. ADALIMUMAB [Concomitant]
     Active Substance: ADALIMUMAB
     Dosage: UNK
  28. INFLECTRA [Concomitant]
     Active Substance: INFLIXIMAB-DYYB
     Indication: PSORIATIC ARTHROPATHY
     Dosage: 320 MG (WEEKS0,2,6, THEN Q8 WEEKS)
     Route: 042
     Dates: start: 20180111

REACTIONS (6)
  - Cough [Recovering/Resolving]
  - Throat irritation [Recovering/Resolving]
  - Product dose omission issue [Unknown]
  - Therapeutic product effect decreased [Unknown]
  - Blood pressure increased [Unknown]
  - Drug ineffective [Unknown]

NARRATIVE: CASE EVENT DATE: 20180111
